FAERS Safety Report 7766174-X (Version None)
Quarter: 2011Q3

REPORT INFORMATION
  Report Type: 
  Country: None (occurrence: None)
  Receive Date: 20110921
  Receipt Date: 20110912
  Transmission Date: 20111222
  Serious: Yes (Other)
  Sender: FDA-Public Use
  Company Number: GB-ASTRAZENECA-2011SE55720

PATIENT
  Sex: Male

DRUGS (1)
  1. ROSUVASTATIN [Suspect]
     Route: 048

REACTIONS (7)
  - ASTHMA [None]
  - NERVOUS SYSTEM DISORDER [None]
  - DRUG INTOLERANCE [None]
  - MULTIPLE SCLEROSIS [None]
  - MYALGIA [None]
  - SUICIDAL IDEATION [None]
  - CONFUSIONAL STATE [None]
